FAERS Safety Report 13500311 (Version 1)
Quarter: 2017Q2

REPORT INFORMATION
  Report Type: Report from Study
  Country: DK (occurrence: DK)
  Receive Date: 20170501
  Receipt Date: 20170501
  Transmission Date: 20170830
  Serious: No
  Sender: FDA-Public Use
  Company Number: DK-EMD SERONO-E2B_80061952

PATIENT
  Age: 69 Year
  Sex: Male
  Weight: 77 kg

DRUGS (4)
  1. MSC2490484A (DNA-PK INHIBITOR) [Suspect]
     Active Substance: INVESTIGATIONAL PRODUCT
     Indication: PROSTATE CANCER
     Route: 048
     Dates: start: 20170227, end: 20170308
  2. METOCLOPRAMID [Concomitant]
     Active Substance: METOCLOPRAMIDE
     Indication: VOMITING
     Route: 048
     Dates: start: 20170301
  3. OLANZAPIN [Concomitant]
     Active Substance: OLANZAPINE
     Indication: VOMITING
     Route: 048
     Dates: start: 20170306
  4. GRANISETRON [Concomitant]
     Active Substance: GRANISETRON
     Indication: VOMITING
     Route: 048
     Dates: start: 20170306, end: 20170309

REACTIONS (5)
  - Constipation [None]
  - Nausea [None]
  - Toxicity to various agents [None]
  - Vomiting [Recovered/Resolved]
  - Weight decreased [None]

NARRATIVE: CASE EVENT DATE: 20170309
